FAERS Safety Report 4499765-2 (Version None)
Quarter: 2004Q4

REPORT INFORMATION
  Report Type: 
  Country: None (occurrence: None)
  Receive Date: 20041112
  Receipt Date: 20041102
  Transmission Date: 20050328
  Serious: Yes (Hospitalization)
  Sender: FDA-Public Use
  Company Number: US-JNJFOC-20040204064

PATIENT
  Sex: Male
  Weight: 78.93 kg

DRUGS (7)
  1. DURAGESIC [Suspect]
     Route: 062
  2. DURAGESIC [Suspect]
     Route: 062
  3. SUMATRIPTAN SUCCINATE [Concomitant]
  4. PROPRANOLOL HYDROCHLORIDE [Concomitant]
  5. TOPIRMATE [Concomitant]
  6. ACETYLSALICYLIC ACID [Concomitant]
  7. QUINAPRIL HYDROCHLORIDE [Concomitant]

REACTIONS (11)
  - ANOREXIA [None]
  - BODY TEMPERATURE INCREASED [None]
  - COLD SWEAT [None]
  - DIZZINESS [None]
  - DRUG WITHDRAWAL SYNDROME [None]
  - LACRIMATION INCREASED [None]
  - MALLORY-WEISS SYNDROME [None]
  - NAUSEA [None]
  - OFF LABEL USE [None]
  - RETCHING [None]
  - STOMACH DISCOMFORT [None]
